FAERS Safety Report 9529559 (Version 1)
Quarter: 2013Q3

REPORT INFORMATION
  Report Type: Report from Study
  Country: US (occurrence: US)
  Receive Date: 20130917
  Receipt Date: 20130917
  Transmission Date: 20140515
  Serious: Yes (Hospitalization)
  Sender: FDA-Public Use
  Company Number: US-JNJFOC-20130904724

PATIENT
  Age: 50 Year
  Sex: Male
  Weight: 118.84 kg

DRUGS (3)
  1. REMICADE [Suspect]
     Indication: PSORIATIC ARTHROPATHY
     Route: 042
     Dates: start: 20130715, end: 20130715
  2. REMICADE [Suspect]
     Indication: PSORIATIC ARTHROPATHY
     Route: 042
     Dates: start: 20100110
  3. REMICADE [Suspect]
     Indication: PSORIATIC ARTHROPATHY
     Route: 042
     Dates: start: 200912

REACTIONS (10)
  - Dyspepsia [Recovered/Resolved]
  - Herpes zoster [Recovered/Resolved]
  - Acne [Recovered/Resolved]
  - Pyrexia [Unknown]
  - Erythema [Unknown]
  - Swelling face [Unknown]
  - Influenza like illness [Unknown]
  - Throat irritation [Recovered/Resolved]
  - Nasopharyngitis [Recovered/Resolved]
  - Urticaria [Recovered/Resolved]
